FAERS Safety Report 10579330 (Version 3)
Quarter: 2016Q1

REPORT INFORMATION
  Report Type: Spontaneous
  Country: US (occurrence: US)
  Receive Date: 20141112
  Receipt Date: 20160308
  Transmission Date: 20160525
  Serious: Yes (Other)
  Sender: FDA-Public Use
  Company Number: US-JNJFOC-20141104768

PATIENT
  Sex: Female

DRUGS (2)
  1. IMBRUVICA [Suspect]
     Active Substance: IBRUTINIB
     Indication: CHRONIC LYMPHOCYTIC LEUKAEMIA
     Route: 048
     Dates: start: 201406
  2. COD LIVER OIL [Concomitant]
     Active Substance: COD LIVER OIL
     Indication: MACULAR DEGENERATION

REACTIONS (5)
  - Skin cancer [Unknown]
  - Lip and/or oral cavity cancer [Unknown]
  - Blood pressure increased [Recovered/Resolved]
  - Constipation [Unknown]
  - Squamous cell carcinoma [Unknown]

NARRATIVE: CASE EVENT DATE: 2014
